FAERS Safety Report 5798153-6 (Version None)
Quarter: 2008Q3

REPORT INFORMATION
  Report Type: 
  Country: None (occurrence: None)
  Receive Date: 20080702
  Receipt Date: 20080625
  Transmission Date: 20090109
  Serious: Yes (Hospitalization)
  Sender: FDA-Public Use
  Company Number: FR-AVENTIS-200813172EU

PATIENT
  Age: 58 Year
  Sex: Male

DRUGS (19)
  1. FLUDEX                             /00340101/ [Suspect]
     Indication: HYPERTENSION
     Route: 048
     Dates: start: 20080321
  2. DOPAMINE HCL [Suspect]
     Dosage: DOSE: UNK
     Route: 042
     Dates: start: 20080321, end: 20080324
  3. KETOPROFEN [Suspect]
     Route: 061
     Dates: start: 20071201
  4. NIFLURIL                           /00224001/ [Suspect]
     Route: 061
     Dates: start: 20080201
  5. CLAMOXYL                           /00249601/ [Suspect]
     Route: 042
     Dates: start: 20080301
  6. ALLOPURINOL [Suspect]
     Route: 048
  7. PLAVIX [Concomitant]
  8. TAHOR [Concomitant]
  9. BISOPROLOL FUMARATE [Concomitant]
  10. CORDARONE [Concomitant]
  11. VASTAREL [Concomitant]
  12. LASIX [Concomitant]
  13. KALEORID [Concomitant]
  14. ALDACTONE [Concomitant]
  15. PREVISCAN                          /00789001/ [Concomitant]
  16. DISCOTRINE [Concomitant]
  17. ATARAX [Concomitant]
  18. DI-ANTALVIC                        /00220901/ [Concomitant]
  19. DIPROSONE                          /00008504/ [Concomitant]

REACTIONS (2)
  - DERMATITIS BULLOUS [None]
  - DERMATITIS EXFOLIATIVE [None]
